FAERS Safety Report 25447913 (Version 1)
Quarter: 2025Q2

REPORT INFORMATION
  Report Type: Report from Study
  Country: CN (occurrence: CN)
  Receive Date: 20250617
  Receipt Date: 20250617
  Transmission Date: 20250716
  Serious: Yes (Other)
  Sender: ROCHE
  Company Number: CN-ROCHE-10000312510

PATIENT
  Age: 55 Year
  Sex: Female
  Weight: 48 kg

DRUGS (12)
  1. OBINUTUZUMAB [Suspect]
     Active Substance: OBINUTUZUMAB
     Indication: Diffuse large B-cell lymphoma
     Route: 042
     Dates: start: 20240402, end: 20240402
  2. OBINUTUZUMAB [Suspect]
     Active Substance: OBINUTUZUMAB
     Route: 042
     Dates: start: 20240430, end: 20240430
  3. POLATUZUMAB VEDOTIN [Suspect]
     Active Substance: POLATUZUMAB VEDOTIN
     Indication: Diffuse large B-cell lymphoma
     Route: 042
     Dates: start: 20240402, end: 20240402
  4. POLATUZUMAB VEDOTIN [Suspect]
     Active Substance: POLATUZUMAB VEDOTIN
     Route: 042
     Dates: start: 20240430, end: 20240430
  5. DEXAMETHASONE [Suspect]
     Active Substance: DEXAMETHASONE
     Indication: Diffuse large B-cell lymphoma
     Route: 042
     Dates: start: 20240402, end: 20240403
  6. DEXAMETHASONE [Suspect]
     Active Substance: DEXAMETHASONE
     Route: 042
     Dates: start: 20240430, end: 20240504
  7. CISPLATIN [Suspect]
     Active Substance: CISPLATIN
     Indication: Diffuse large B-cell lymphoma
     Route: 042
     Dates: start: 20240402, end: 20240403
  8. CISPLATIN [Suspect]
     Active Substance: CISPLATIN
     Route: 042
     Dates: start: 20240403, end: 20240406
  9. CISPLATIN [Suspect]
     Active Substance: CISPLATIN
     Route: 042
     Dates: start: 20240430, end: 20240502
  10. GEMCITABINE [Suspect]
     Active Substance: GEMCITABINE
     Indication: Diffuse large B-cell lymphoma
     Route: 042
     Dates: start: 20240402, end: 20240403
  11. GEMCITABINE [Suspect]
     Active Substance: GEMCITABINE
     Route: 042
     Dates: start: 20240430, end: 20240501
  12. mometasone furoate cream [Concomitant]
     Route: 050
     Dates: start: 20240423, end: 20240423

REACTIONS (1)
  - Monocyte count increased [Recovered/Resolved]

NARRATIVE: CASE EVENT DATE: 20240510
